FAERS Safety Report 7447609-9 (Version None)
Quarter: 2011Q2

REPORT INFORMATION
  Report Type: 
  Country: None (occurrence: None)
  Receive Date: 20110429
  Receipt Date: 20110111
  Transmission Date: 20111010
  Serious: No
  Sender: FDA-Public Use
  Company Number: US-ASTRAZENECA-2011SE01805

PATIENT
  Age: 60 Year
  Sex: Female
  Weight: 70.3 kg

DRUGS (5)
  1. ZOLPIDEM [Concomitant]
  2. NEXIUM [Suspect]
     Route: 048
  3. HYDROCHLOROTHIAZIDE [Concomitant]
  4. SIMVASTATIN [Concomitant]
  5. TOPROL-XL [Concomitant]

REACTIONS (11)
  - ABDOMINAL DISTENSION [None]
  - EYE IRRITATION [None]
  - CHEST PAIN [None]
  - BONE PAIN [None]
  - SKELETAL INJURY [None]
  - ABDOMINAL PAIN UPPER [None]
  - VOLVULUS [None]
  - PAIN IN EXTREMITY [None]
  - DRUG DOSE OMISSION [None]
  - NAUSEA [None]
  - FLATULENCE [None]
